FAERS Safety Report 20613703 (Version 1)
Quarter: 2022Q1

REPORT INFORMATION
  Report Type: Spontaneous
  Country: TW (occurrence: None)
  Receive Date: 20220319
  Receipt Date: 20220319
  Transmission Date: 20220424
  Serious: Yes (Other)
  Sender: FDA-Public Use
  Company Number: TW-ROCHE-3047890

PATIENT
  Age: 2 Year
  Sex: Female

DRUGS (4)
  1. CELLCEPT [Suspect]
     Active Substance: MYCOPHENOLATE MOFETIL
     Indication: Renal transplant
     Route: 065
     Dates: start: 202107
  2. LERCANIDIPINE HYDROCHLORIDE [Concomitant]
     Active Substance: LERCANIDIPINE HYDROCHLORIDE
     Indication: Renal transplant
     Dates: start: 202107
  3. FUROSEMIDE [Concomitant]
     Active Substance: FUROSEMIDE
     Indication: Renal transplant
     Dates: start: 202107
  4. TACROLIMUS [Concomitant]
     Active Substance: TACROLIMUS
     Indication: Renal transplant
     Dates: start: 202107

REACTIONS (2)
  - Nephrolithiasis [Unknown]
  - Renal disorder [Unknown]

NARRATIVE: CASE EVENT DATE: 20220115
